FAERS Safety Report 7637979-0 (Version None)
Quarter: 2011Q3

REPORT INFORMATION
  Report Type: 
  Country: None (occurrence: None)
  Receive Date: 20110727
  Receipt Date: 20110707
  Transmission Date: 20111222
  Serious: No
  Sender: FDA-Public Use
  Company Number: US-B.I. PHARMACEUTICALS,INC./RIDGEFIELD-2011-BP-17341BP

PATIENT
  Sex: Female

DRUGS (6)
  1. FOLIC ACID [Concomitant]
     Indication: PROPHYLAXIS
     Dosage: 1 MG
     Route: 048
  2. ANTIHISTAMINE [Concomitant]
  3. EVISTA [Concomitant]
     Indication: HORMONE LEVEL ABNORMAL
     Route: 048
  4. SPIRIVA [Suspect]
     Indication: CHRONIC OBSTRUCTIVE PULMONARY DISEASE
     Dosage: 18 MCG
     Route: 055
  5. DILTIAZEM [Concomitant]
     Indication: CARDIAC DISORDER
     Dosage: 360 MG
     Route: 048
  6. BENAZEPRIL HYDROCHLORIDE [Concomitant]
     Indication: HYPERTENSION
     Route: 048

REACTIONS (5)
  - DYSPHONIA [None]
  - THROAT IRRITATION [None]
  - DRY MOUTH [None]
  - INCORRECT ROUTE OF DRUG ADMINISTRATION [None]
  - URTICARIA [None]
